FAERS Safety Report 6572670-3 (Version None)
Quarter: 2010Q1

REPORT INFORMATION
  Report Type: 
  Country: None (occurrence: None)
  Receive Date: 20100205
  Receipt Date: 20100201
  Transmission Date: 20100710
  Serious: Yes (Hospitalization)
  Sender: FDA-Public Use
  Company Number: US-BAYER-201011201BCC

PATIENT
  Age: 82 Year
  Sex: Male

DRUGS (5)
  1. ASPIRIN [Suspect]
     Indication: DRUG USE FOR UNKNOWN INDICATION
     Dosage: AS USED: 325 MG  UNIT DOSE: 325 MG
     Route: 048
     Dates: start: 20080701
  2. ASPIRIN [Suspect]
     Dosage: TOTAL DAILY DOSE: 81 MG  UNIT DOSE: 81 MG
     Route: 048
     Dates: start: 19970101, end: 20080704
  3. PLAVIX [Suspect]
     Indication: CORONARY ARTERIAL STENT INSERTION
     Dosage: TOTAL DAILY DOSE: 75 MG  UNIT DOSE: 75 MG
     Route: 048
     Dates: start: 20080301, end: 20080704
  4. ANTIHYPERTENSIVES [Concomitant]
     Indication: HYPERTENSION
     Route: 065
  5. DRUG USED IN DIABETES [Concomitant]
     Indication: DIABETES MELLITUS
     Route: 065

REACTIONS (9)
  - BALANCE DISORDER [None]
  - CHEST INJURY [None]
  - CONTUSION [None]
  - FALL [None]
  - HEAD INJURY [None]
  - JOINT INJURY [None]
  - LOSS OF CONTROL OF LEGS [None]
  - ROTATOR CUFF SYNDROME [None]
  - SUBDURAL HAEMATOMA [None]
